FAERS Safety Report 4437927-0 (Version None)
Quarter: 2004Q3

REPORT INFORMATION
  Report Type: 
  Country: None (occurrence: None)
  Receive Date: 20040728
  Receipt Date: 20040319
  Transmission Date: 20050211
  Serious: No
  Sender: FDA-Public Use
  Company Number: USA040362606

PATIENT
  Age: 11 Year
  Sex: Male
  Weight: 41 kg

DRUGS (1)
  1. STRATTERA [Suspect]
     Dosage: 40 MG IN THE EVENING
     Dates: start: 20040201

REACTIONS (3)
  - FEAR [None]
  - FEELING ABNORMAL [None]
  - VOMITING [None]
